FAERS Safety Report 23252875 (Version 1)
Quarter: 2023Q4

REPORT INFORMATION
  Report Type: Spontaneous
  Country: US (occurrence: US)
  Receive Date: 20231201
  Receipt Date: 20231201
  Transmission Date: 20240109
  Serious: No
  Sender: FDA-Public Use
  Company Number: US-ORG100016242-2023000156

PATIENT
  Age: 87 Year
  Sex: Male

DRUGS (1)
  1. ZILRETTA [Suspect]
     Active Substance: TRIAMCINOLONE ACETONIDE
     Indication: Osteoarthritis
     Dosage: NOT PROVIDED
     Route: 014
     Dates: start: 20221216, end: 20221216

REACTIONS (1)
  - Drug ineffective [Not Recovered/Not Resolved]
